FAERS Safety Report 21135790 (Version 1)
Quarter: 2022Q3

REPORT INFORMATION
  Report Type: Spontaneous
  Country: SE (occurrence: SE)
  Receive Date: 20220727
  Receipt Date: 20220727
  Transmission Date: 20221026
  Serious: Yes (Other)
  Sender: FDA-Public Use
  Company Number: SE-SUN PHARMACEUTICAL INDUSTRIES LTD-2022R1-345829

PATIENT
  Sex: Female

DRUGS (3)
  1. NITROFURANTOIN [Suspect]
     Active Substance: NITROFURANTOIN
     Indication: Urinary tract infection
     Dosage: UNK/ TWICE
     Route: 065
  2. PENICILLIN G [Suspect]
     Active Substance: PENICILLIN G
     Indication: Prolonged rupture of membranes
     Dosage: UNK/INTRAPARTUM
     Route: 065
  3. AMDINOCILLIN PIVOXIL [Suspect]
     Active Substance: AMDINOCILLIN PIVOXIL
     Indication: Urinary tract infection
     Dosage: UNK/ TWICE
     Route: 065

REACTIONS (3)
  - Exposure during pregnancy [Unknown]
  - Prolonged rupture of membranes [Unknown]
  - Premature delivery [Unknown]
